FAERS Safety Report 4783694-0 (Version None)
Quarter: 2005Q3

REPORT INFORMATION
  Report Type: 
  Country: None (occurrence: None)
  Receive Date: 20050928
  Receipt Date: 20050915
  Transmission Date: 20060218
  Serious: Yes (Hospitalization, Other)
  Sender: FDA-Public Use
  Company Number: 2005131111

PATIENT
  Age: 55 Year
  Sex: Male

DRUGS (7)
  1. ATORVASTATIN CALCIUM [Suspect]
     Indication: ILL-DEFINED DISORDER
     Dosage: 10 MG (1 IN 1 D), ORAL
     Route: 048
     Dates: start: 20050801, end: 20050806
  2. CORDARONE [Suspect]
     Indication: ATRIAL FIBRILLATION
     Dosage: 100 MG (1 IN 1 D), ORAL
     Route: 048
     Dates: start: 20050620, end: 20050806
  3. PANTOPRAZOLE SODIUM [Suspect]
     Indication: GASTROOESOPHAGEAL REFLUX DISEASE
     Dosage: 40 MG (1 IN 1 D), ORAL
     Route: 048
     Dates: start: 20050215
  4. PREVISCAN (FLUINDIONE) [Concomitant]
  5. METFORMIN HCL [Concomitant]
  6. SECTRAL [Concomitant]
  7. ASPEGIC 1000 [Concomitant]

REACTIONS (6)
  - ATRIAL FIBRILLATION [None]
  - ATRIAL FLUTTER [None]
  - DRUG INTERACTION [None]
  - GASTROOESOPHAGEAL REFLUX DISEASE [None]
  - HYPERKALAEMIA [None]
  - RHABDOMYOLYSIS [None]
